FAERS Safety Report 7352508-7 (Version None)
Quarter: 2011Q1

REPORT INFORMATION
  Report Type: 
  Country: None (occurrence: None)
  Receive Date: 20110315
  Receipt Date: 20110309
  Transmission Date: 20110831
  Serious: Yes (Other)
  Sender: FDA-Public Use
  Company Number: AU-PFIZER INC-2011053551

PATIENT
  Age: 9 Year

DRUGS (2)
  1. ZOLOFT [Suspect]
     Dosage: UNK
     Route: 063
     Dates: start: 20020101
  2. ZOLOFT [Suspect]
     Dosage: UNK
     Route: 064
     Dates: start: 20010101

REACTIONS (3)
  - DRUG EXPOSURE DURING PREGNANCY [None]
  - DIABETES MELLITUS [None]
  - DRUG EXPOSURE VIA BREAST MILK [None]
